FAERS Safety Report 7482688-4 (Version None)
Quarter: 2011Q2

REPORT INFORMATION
  Report Type: 
  Country: None (occurrence: None)
  Receive Date: 20110516
  Receipt Date: 20101029
  Transmission Date: 20111010
  Serious: Yes (Hospitalization, Other)
  Sender: FDA-Public Use
  Company Number: US-BAYER-201029487NA

PATIENT
  Age: 28 Year
  Sex: Female
  Weight: 143 kg

DRUGS (7)
  1. METRONIDAZOLE [Concomitant]
     Dosage: 500 MG, UNK
  2. METFORMIN HCL [Concomitant]
     Dosage: 500 MG, UNK
     Route: 048
  3. NAPROXEN [Concomitant]
  4. YASMIN [Suspect]
     Indication: MENSTRUATION IRREGULAR
     Dosage: UNK
     Dates: start: 19950101, end: 20090101
  5. DROSPIRENONE AND ETHINYL ESTRADIOL [Suspect]
     Indication: MENSTRUATION IRREGULAR
     Dosage: UNK
     Dates: start: 20081001, end: 20090401
  6. YASMIN [Suspect]
     Indication: ACNE
     Dosage: UNK
     Dates: start: 20080101, end: 20080201
  7. DROSPIRENONE AND ETHINYL ESTRADIOL [Suspect]
     Dosage: UNK
     Dates: start: 19950101, end: 20090101

REACTIONS (3)
  - INJURY [None]
  - ABDOMINAL PAIN UPPER [None]
  - CHOLECYSTITIS CHRONIC [None]
